FAERS Safety Report 9442913 (Version 1)
Quarter: 2013Q3

REPORT INFORMATION
  Report Type: Report from Study
  Country: CA (occurrence: CA)
  Receive Date: 20130806
  Receipt Date: 20130806
  Transmission Date: 20140515
  Serious: Yes (Other)
  Sender: FDA-Public Use
  Company Number: CA-ABBOTT-13P-028-1127261-00

PATIENT
  Sex: Female

DRUGS (1)
  1. HUMIRA [Suspect]
     Indication: RHEUMATOID ARTHRITIS
     Route: 058
     Dates: start: 20100311

REACTIONS (2)
  - Neck mass [Not Recovered/Not Resolved]
  - Malignant melanoma [Not Recovered/Not Resolved]
